FAERS Safety Report 6290794-5 (Version None)
Quarter: 2009Q3

REPORT INFORMATION
  Report Type: 
  Country: None (occurrence: None)
  Receive Date: 20090729
  Receipt Date: 20090729
  Transmission Date: 20100115
  Serious: Yes (Other)
  Sender: FDA-Public Use
  Company Number: None

PATIENT
  Age: 32 Year
  Sex: Female
  Weight: 58.9676 kg

DRUGS (2)
  1. CIPRO [Suspect]
     Indication: CYSTITIS
     Dosage: 250 MG 2X DAY PO
     Route: 048
     Dates: start: 20090711, end: 20090713
  2. CIPRO [Suspect]
     Indication: URINARY TRACT INFECTION
     Dosage: 250 MG 2X DAY PO
     Route: 048
     Dates: start: 20090711, end: 20090713

REACTIONS (6)
  - ARTHRALGIA [None]
  - GAIT DISTURBANCE [None]
  - HEADACHE [None]
  - PAIN [None]
  - TENDON DISORDER [None]
  - TENDON PAIN [None]
